FAERS Safety Report 25312399 (Version 1)
Quarter: 2025Q2

REPORT INFORMATION
  Report Type: Spontaneous
  Country: CN (occurrence: CN)
  Receive Date: 20250514
  Receipt Date: 20250514
  Transmission Date: 20250717
  Serious: Yes (Other)
  Sender: BAYER HEALTHCARE PHARMACEUTICALS INC.
  Company Number: CN-BAYER-2025A064811

PATIENT
  Age: 80 Year
  Sex: Male

DRUGS (1)
  1. ULTRAVIST [Suspect]
     Active Substance: IOPROMIDE
     Indication: Magnetic resonance imaging head
     Route: 041
     Dates: start: 20250505, end: 20250505

REACTIONS (6)
  - Contrast encephalopathy [Not Recovered/Not Resolved]
  - Somnolence [None]
  - Dysarthria [None]
  - Confusional state [None]
  - Cough [None]
  - Muscular weakness [None]

NARRATIVE: CASE EVENT DATE: 20250505
